FAERS Safety Report 14069165 (Version 1)
Quarter: 2017Q4

REPORT INFORMATION
  Report Type: Spontaneous
  Country: FR (occurrence: FR)
  Receive Date: 20171010
  Receipt Date: 20171010
  Transmission Date: 20180321
  Serious: Yes (Hospitalization, Other)
  Sender: FDA-Public Use
  Company Number: FR-MERCK KGAA-2029447

PATIENT
  Age: 29 Year
  Sex: Female

DRUGS (4)
  1. LOCAPRED [Concomitant]
     Active Substance: DESONIDE
     Route: 003
  2. UN-ALFA [Concomitant]
     Active Substance: ALFACALCIDOL
     Route: 002
  3. NOVOTHYROX [Suspect]
     Active Substance: LEVOTHYROXINE SODIUM
     Indication: THYROIDECTOMY
     Route: 048
     Dates: start: 20170610
  4. DIPROSONE [Concomitant]
     Active Substance: BETAMETHASONE DIPROPIONATE
     Route: 003

REACTIONS (17)
  - Pollakiuria [Not Recovered/Not Resolved]
  - Night sweats [Recovered/Resolved]
  - Asthenia [Not Recovered/Not Resolved]
  - Disturbance in attention [Not Recovered/Not Resolved]
  - Decreased appetite [Not Recovered/Not Resolved]
  - Dry skin [Not Recovered/Not Resolved]
  - Diarrhoea [Not Recovered/Not Resolved]
  - Eczema [Unknown]
  - Abdominal distension [Not Recovered/Not Resolved]
  - Confusional state [Not Recovered/Not Resolved]
  - Blood thyroid stimulating hormone increased [Unknown]
  - Tachycardia [Unknown]
  - Memory impairment [Not Recovered/Not Resolved]
  - Constipation [Not Recovered/Not Resolved]
  - Oropharyngeal pain [Unknown]
  - Dry mouth [Not Recovered/Not Resolved]
  - Insomnia [Not Recovered/Not Resolved]

NARRATIVE: CASE EVENT DATE: 201707
